FAERS Safety Report 7613872 (Version 9)
Quarter: 2013Q4

REPORT INFORMATION
  Report Type: Spontaneous
  Country: US (occurrence: US)
  Receive Date: 20101001
  Receipt Date: 20131217
  Transmission Date: 20140711
  Serious: Yes (Hospitalization, Other)
  Sender: FDA-Public Use
  Company Number: US-BAYER-201035197NA

PATIENT
  Age: 34 Year
  Sex: Female
  Weight: 83.9 kg

DRUGS (5)
  1. YAZ [Suspect]
     Indication: CONTRACEPTION
     Dosage: UNK UNK, QD
     Route: 048
     Dates: start: 200904, end: 200909
  2. LEXAPRO [Concomitant]
     Dosage: 10 MG, UNK
  3. MOTRIN [Concomitant]
  4. ADVIL [Concomitant]
  5. VICODIN [Concomitant]

REACTIONS (5)
  - Biliary colic [None]
  - Cholecystitis [None]
  - Pain [None]
  - Malaise [None]
  - Vomiting [None]
